FAERS Safety Report 22144203 (Version 1)
Quarter: 2023Q1

REPORT INFORMATION
  Report Type: Spontaneous
  Country: US (occurrence: US)
  Receive Date: 20230327
  Receipt Date: 20230327
  Transmission Date: 20230417
  Serious: Yes (Other)
  Sender: FDA-Public Use
  Company Number: US-BRISTOL-MYERS SQUIBB COMPANY-2023-043054

PATIENT
  Age: 65 Year
  Sex: Female

DRUGS (1)
  1. ORENCIA [Suspect]
     Active Substance: ABATACEPT
     Indication: Product used for unknown indication
     Dosage: DOSE : UNAVAILABLE;     FREQ : 1 SYRINGE SUBCUTANOUSLY ONCE WEEKLY
     Route: 058

REACTIONS (4)
  - Clavicle fracture [Unknown]
  - Fall [Unknown]
  - Bone pain [Unknown]
  - Mobility decreased [Unknown]
